FAERS Safety Report 16500252 (Version 1)
Quarter: 2019Q3

REPORT INFORMATION
  Report Type: Spontaneous
  Country: US (occurrence: US)
  Receive Date: 20190701
  Receipt Date: 20190701
  Transmission Date: 20191004
  Serious: No
  Sender: FDA-Public Use
  Company Number: US-AMGEN-USASP2019101807

PATIENT
  Age: 85 Year
  Sex: Female
  Weight: 48.98 kg

DRUGS (2)
  1. CYMBALTA [Concomitant]
     Active Substance: DULOXETINE HYDROCHLORIDE
     Dosage: UNK
     Dates: end: 2019
  2. PROLIA [Suspect]
     Active Substance: DENOSUMAB
     Indication: OSTEOPOROSIS POSTMENOPAUSAL
     Dosage: UNK
     Route: 065

REACTIONS (6)
  - Swollen tongue [Unknown]
  - Weight decreased [Unknown]
  - Stomatitis [Unknown]
  - Glossodynia [Not Recovered/Not Resolved]
  - Eating disorder [Unknown]
  - Candida infection [Unknown]

NARRATIVE: CASE EVENT DATE: 201812
